FAERS Safety Report 6467610-1 (Version None)
Quarter: 2009Q4

REPORT INFORMATION
  Report Type: 
  Country: None (occurrence: None)
  Receive Date: 20091202
  Receipt Date: 20081114
  Transmission Date: 20100525
  Serious: No
  Sender: FDA-Public Use
  Company Number: US-AMGEN-KDL319061

PATIENT
  Sex: Female

DRUGS (3)
  1. ENBREL [Suspect]
     Indication: SARCOIDOSIS
     Route: 058
     Dates: start: 20081106
  2. NEORAL [Concomitant]
     Route: 048
     Dates: start: 20071001
  3. METHOTREXATE [Concomitant]
     Dates: start: 20071101

REACTIONS (2)
  - EAR INFECTION [None]
  - SINUSITIS [None]
